FAERS Safety Report 6642034-2 (Version None)
Quarter: 2010Q1

REPORT INFORMATION
  Report Type: 
  Country: None (occurrence: None)
  Receive Date: 20100319
  Receipt Date: 20100309
  Transmission Date: 20100710
  Serious: Yes (Other)
  Sender: FDA-Public Use
  Company Number: US-WYE-H14061310

PATIENT
  Age: 16 Year
  Sex: Male

DRUGS (3)
  1. ROBITUSSIN COUGH AND CHEST CONGESTION DM [Suspect]
     Indication: DRUG ABUSE
     Dosage: UNKNOWN
     Route: 048
     Dates: start: 19970101, end: 20090101
  2. KLONOPIN [Concomitant]
     Indication: HYPERTENSION
     Dosage: UNKNOWN
     Route: 048
  3. CITALOPRAM HYDROBROMIDE [Concomitant]
     Indication: DEPRESSION
     Dosage: UNKNOWN
     Route: 048

REACTIONS (1)
  - DRUG ABUSE [None]
